FAERS Safety Report 10042468 (Version 1)
Quarter: 2014Q1

REPORT INFORMATION
  Report Type: Spontaneous
  Country: HK (occurrence: HK)
  Receive Date: 20140327
  Receipt Date: 20140327
  Transmission Date: 20141002
  Serious: Yes (Death)
  Sender: FDA-Public Use
  Company Number: HK-PFIZER INC-2014087414

PATIENT
  Sex: 0

DRUGS (1)
  1. NORVASC [Suspect]

REACTIONS (1)
  - Death [Fatal]
